FAERS Safety Report 10192810 (Version 2)
Quarter: 2014Q3

REPORT INFORMATION
  Report Type: Spontaneous
  Country: US (occurrence: US)
  Receive Date: 20140523
  Receipt Date: 20140911
  Transmission Date: 20150326
  Serious: No
  Sender: FDA-Public Use
  Company Number: US-ASTRAZENECA-2014SE09314

PATIENT
  Age: 12 Year
  Sex: Female
  Weight: 42.2 kg

DRUGS (4)
  1. ZOPENEX NEBULIZER [Concomitant]
  2. PULMICORT FLEXHALER [Suspect]
     Active Substance: BUDESONIDE
     Indication: ASTHMA
     Dosage: 180 MCG 2 PUFF, TWO TIMES A  DAY
     Route: 055
     Dates: start: 20140125, end: 20140209
  3. SUDAFED [Concomitant]
     Active Substance: PSEUDOEPHEDRINE HYDROCHLORIDE
  4. PULMICORT FLEXHALER [Suspect]
     Active Substance: BUDESONIDE
     Indication: ASTHMA
     Dosage: 180 MCG 2 PUFF, DAILY
     Route: 055

REACTIONS (5)
  - Sinusitis [Recovering/Resolving]
  - Cough [Recovering/Resolving]
  - Ear infection [Recovering/Resolving]
  - Drug ineffective [Recovering/Resolving]
  - Nasopharyngitis [Recovering/Resolving]

NARRATIVE: CASE EVENT DATE: 20140131
